FAERS Safety Report 7600887-5 (Version None)
Quarter: 2011Q3

REPORT INFORMATION
  Report Type: 
  Country: None (occurrence: None)
  Receive Date: 20110708
  Receipt Date: 20110708
  Transmission Date: 20111222
  Serious: Yes (Disabling)
  Sender: FDA-Public Use
  Company Number: None

PATIENT
  Age: 61 Year
  Sex: Male
  Weight: 77.1115 kg

DRUGS (1)
  1. DORZOX-T 5ML CIPLA [Suspect]
     Indication: GLAUCOMA
     Dosage: ONE DROP EACH EYE TWICE DAILY
     Dates: start: 20110101, end: 20110501

REACTIONS (3)
  - INTRAOCULAR PRESSURE DECREASED [None]
  - PRODUCT SUBSTITUTION ISSUE [None]
  - VISUAL IMPAIRMENT [None]
